FAERS Safety Report 24828044 (Version 1)
Quarter: 2025Q1

REPORT INFORMATION
  Report Type: Spontaneous
  Country: US (occurrence: US)
  Receive Date: 20250109
  Receipt Date: 20250109
  Transmission Date: 20250408
  Serious: No
  Sender: AMGEN
  Company Number: US-AMGEN-USASP2025001470

PATIENT
  Sex: Female
  Weight: 55.782 kg

DRUGS (5)
  1. TEPEZZA [Suspect]
     Active Substance: TEPROTUMUMAB-TRBW
     Indication: Toxic goitre
     Dosage: 1100 MILLIGRAM, Q3WK (TEPEZZA 500 MG SDV/INJ PWD)
     Route: 040
  2. WATER FOR INJECTION [Concomitant]
     Active Substance: WATER
  3. GABAPENTIN [Concomitant]
     Active Substance: GABAPENTIN
  4. TRAMADOL HCL [Concomitant]
     Active Substance: TRAMADOL HYDROCHLORIDE
  5. IBUPROFEN [Concomitant]
     Active Substance: IBUPROFEN

REACTIONS (2)
  - Vision blurred [Unknown]
  - Dry eye [Unknown]
